FAERS Safety Report 16560477 (Version 4)
Quarter: 2025Q2

REPORT INFORMATION
  Report Type: Spontaneous
  Country: VE (occurrence: VE)
  Receive Date: 20190711
  Receipt Date: 20250401
  Transmission Date: 20250716
  Serious: Yes (Hospitalization, Other)
  Sender: NOVARTIS
  Company Number: PHHY2019VE158411

PATIENT
  Sex: Male

DRUGS (2)
  1. GLIVEC [Suspect]
     Active Substance: IMATINIB MESYLATE
     Indication: Chronic myeloid leukaemia
     Route: 065
  2. CAPTOPRIL [Suspect]
     Active Substance: CAPTOPRIL
     Indication: Product used for unknown indication
     Route: 065

REACTIONS (13)
  - Swelling face [Unknown]
  - Dysarthria [Unknown]
  - Cerebrovascular accident [Recovering/Resolving]
  - Blood pressure increased [Recovering/Resolving]
  - Angina pectoris [Recovered/Resolved]
  - Infarction [Recovered/Resolved]
  - Discomfort [Unknown]
  - Muscular weakness [Unknown]
  - Pain [Unknown]
  - Hypoaesthesia [Unknown]
  - Neuritis [Unknown]
  - Tachycardia [Recovered/Resolved]
  - Malaise [Recovered/Resolved]
